FAERS Safety Report 7498295-3 (Version None)
Quarter: 2011Q2

REPORT INFORMATION
  Report Type: 
  Country: None (occurrence: None)
  Receive Date: 20110524
  Receipt Date: 20110426
  Transmission Date: 20111010
  Serious: Yes (Hospitalization, Other)
  Sender: FDA-Public Use
  Company Number: US-BAYER-2011-008143

PATIENT
  Sex: Female
  Weight: 63.039 kg

DRUGS (13)
  1. YASMIN [Suspect]
     Indication: CONTRACEPTION
  2. NABUMETONE [Concomitant]
     Indication: INFLAMMATION
     Dosage: 750 MG, TID
     Route: 048
  3. YAZ [Suspect]
     Indication: CONTRACEPTION
  4. YAZ [Suspect]
     Indication: MENSTRUATION IRREGULAR
  5. YASMIN [Suspect]
     Indication: MENSTRUATION IRREGULAR
  6. DROSPIRENONE AND ETHINYL ESTRADIOL [Suspect]
     Indication: ACNE
  7. YAZ [Suspect]
     Indication: ACNE
     Dosage: UNK
     Dates: start: 20060101, end: 20070101
  8. YAZ [Suspect]
     Indication: MENORRHAGIA
  9. AMBIEN [Concomitant]
     Indication: INSOMNIA
     Dosage: 5 MG, PRN
     Route: 048
  10. CLONAZEPAM [Concomitant]
     Indication: INSOMNIA
     Dosage: 0.5 MG, PRN
     Route: 048
  11. YASMIN [Suspect]
     Indication: ACNE
  12. YASMIN [Suspect]
     Indication: MENORRHAGIA
  13. THYROID TAB [Concomitant]
     Indication: HYPOTHYROIDISM
     Dosage: UNK UNK, QD
     Route: 048

REACTIONS (3)
  - PAIN [None]
  - INJURY [None]
  - DEEP VEIN THROMBOSIS [None]
